FAERS Safety Report 9373470 (Version 3)
Quarter: 2013Q3

REPORT INFORMATION
  Report Type: Spontaneous
  Country: BR (occurrence: BR)
  Receive Date: 20130627
  Receipt Date: 20130823
  Transmission Date: 20140515
  Serious: Yes (Hospitalization, Other)
  Sender: FDA-Public Use
  Company Number: BR-ABBOTT-13P-020-1108909-00

PATIENT
  Age: 64 Year
  Sex: Female
  Weight: 66 kg

DRUGS (6)
  1. HUMIRA [Suspect]
     Indication: RHEUMATOID ARTHRITIS
     Route: 058
     Dates: start: 20130103, end: 201305
  2. METHOTREXATE [Concomitant]
     Indication: RHEUMATOID ARTHRITIS
     Dates: start: 201012, end: 201307
  3. LEFLUNOMIDE [Concomitant]
     Indication: RHEUMATOID ARTHRITIS
     Dates: start: 201104, end: 201212
  4. PREDNISONE [Concomitant]
     Indication: PRODUCT USED FOR UNKNOWN INDICATION
     Dates: start: 201012, end: 201303
  5. UNKNOWN DRUG [Concomitant]
     Indication: DIABETES MELLITUS
  6. UNKNOWN DRUG [Concomitant]
     Indication: HYPERTENSION

REACTIONS (4)
  - Bone marrow failure [Recovering/Resolving]
  - Coma [Recovered/Resolved]
  - Infection [Recovered/Resolved]
  - Unevaluable event [Recovering/Resolving]
